FAERS Safety Report 5955885-4 (Version None)
Quarter: 2008Q4

REPORT INFORMATION
  Report Type: 
  Country: None (occurrence: None)
  Receive Date: 20081113
  Receipt Date: 20081106
  Transmission Date: 20090506
  Serious: Yes (Other)
  Sender: FDA-Public Use
  Company Number: 2008SP022696

PATIENT
  Age: 41 Year
  Sex: Female

DRUGS (2)
  1. PEG-INTRON [Suspect]
     Indication: HEPATITIS C
     Dosage: SC
     Route: 058
     Dates: start: 20080818, end: 20081024
  2. RIBASPHERE [Suspect]
     Indication: HEPATITIS C
     Dosage: PO
     Route: 048
     Dates: start: 20080818

REACTIONS (6)
  - EYE DISORDER [None]
  - EYE PAIN [None]
  - MIGRAINE [None]
  - NAUSEA [None]
  - RETINAL DETACHMENT [None]
  - VISUAL ACUITY REDUCED [None]
